FAERS Safety Report 13781175 (Version 1)
Quarter: 2017Q3

REPORT INFORMATION
  Report Type: Spontaneous
  Country: US (occurrence: US)
  Receive Date: 20170721
  Receipt Date: 20170721
  Transmission Date: 20171127
  Serious: No
  Sender: FDA-Public Use
  Company Number: None

PATIENT
  Sex: Female

DRUGS (16)
  1. AMIODARONE [Concomitant]
     Active Substance: AMIODARONE
  2. QUINAPRIL. [Concomitant]
     Active Substance: QUINAPRIL
  3. CALCIUM CARBONATE. [Concomitant]
     Active Substance: CALCIUM CARBONATE
  4. HEPARIN [Suspect]
     Active Substance: HEPARIN SODIUM
     Indication: CARDIAC ELECTROPHYSIOLOGIC STUDY
     Route: 040
     Dates: start: 20170707, end: 20170707
  5. BIOTIN [Concomitant]
     Active Substance: BIOTIN
  6. ATORVASTATIN [Concomitant]
     Active Substance: ATORVASTATIN
  7. MULTIVITAMIN [Concomitant]
     Active Substance: VITAMINS
  8. TIOTROPIUM [Concomitant]
     Active Substance: TIOTROPIUM
  9. HEPARIN [Suspect]
     Active Substance: HEPARIN SODIUM
     Indication: CARDIAC ABLATION
     Route: 040
     Dates: start: 20170707, end: 20170707
  10. APIXIBAN [Concomitant]
     Active Substance: APIXABAN
  11. PROBIOTIC [Concomitant]
     Active Substance: PROBIOTICS NOS
  12. CLONIDINE. [Concomitant]
     Active Substance: CLONIDINE
  13. FISH OIL [Concomitant]
     Active Substance: FISH OIL
  14. ESOMEPRAZOLE [Concomitant]
     Active Substance: ESOMEPRAZOLE
  15. VITAMIN D3 [Concomitant]
     Active Substance: CHOLECALCIFEROL
  16. AMLODIPINE [Concomitant]
     Active Substance: AMLODIPINE BESYLATE

REACTIONS (1)
  - Therapy change [None]

NARRATIVE: CASE EVENT DATE: 20170707
